FAERS Safety Report 8935711 (Version 1)
Quarter: 2012Q4

REPORT INFORMATION
  Report Type: Report from Study
  Country: DE (occurrence: DE)
  Receive Date: 20121130
  Receipt Date: 20121130
  Transmission Date: 20130627
  Serious: Yes (Hospitalization)
  Sender: FDA-Public Use
  Company Number: DE-BRISTOL-MYERS SQUIBB COMPANY-15953029

PATIENT
  Age: 73 Year
  Sex: Female
  Weight: 74.8 kg

DRUGS (11)
  1. CISPLATIN [Suspect]
     Indication: NON-SMALL CELL LUNG CANCER
     Route: 042
     Dates: start: 20100916
  2. PEMETREXED DISODIUM [Suspect]
     Indication: NON-SMALL CELL LUNG CANCER
     Route: 042
     Dates: start: 20100916
  3. NECITUMUMAB [Suspect]
     Indication: NON-SMALL CELL LUNG CANCER
     Route: 042
     Dates: start: 20100916
  4. ACC [Concomitant]
  5. NEXIUM [Concomitant]
  6. IBUHEXAL [Concomitant]
  7. CHLORPHENAMINE MALEATE [Concomitant]
  8. CODEINE [Concomitant]
  9. MAGNESIOCARD [Concomitant]
  10. VITAMIN B12 [Concomitant]
     Indication: SUPPLEMENTATION THERAPY
     Dates: start: 20100910
  11. FOLIC ACID [Concomitant]
     Indication: SUPPLEMENTATION THERAPY
     Dates: start: 20100910

REACTIONS (3)
  - General physical health deterioration [Recovered/Resolved]
  - Nausea [Recovering/Resolving]
  - Vertigo [Recovering/Resolving]
